FAERS Safety Report 19482004 (Version 1)
Quarter: 2021Q2

REPORT INFORMATION
  Report Type: Spontaneous
  Country: US (occurrence: US)
  Receive Date: 20210630
  Receipt Date: 20210630
  Transmission Date: 20210717
  Serious: No
  Sender: FDA-Public Use
  Company Number: None

PATIENT
  Age: 87 Year
  Sex: Female
  Weight: 93.6 kg

DRUGS (2)
  1. CASIRIVIMAB. [Suspect]
     Active Substance: CASIRIVIMAB
     Indication: COVID-19 TREATMENT
     Dosage: ?          OTHER FREQUENCY:ONCE;?
     Route: 041
  2. IMDEVIMAB. [Suspect]
     Active Substance: IMDEVIMAB
     Indication: COVID-19 TREATMENT
     Dosage: ?          OTHER FREQUENCY:ONCE;?
     Route: 041

REACTIONS (1)
  - Tinnitus [None]

NARRATIVE: CASE EVENT DATE: 20210630
